FAERS Safety Report 10428698 (Version 1)
Quarter: 2014Q3

REPORT INFORMATION
  Report Type: Spontaneous
  Country: CA (occurrence: None)
  Receive Date: 20140902
  Receipt Date: 20140902
  Transmission Date: 20150326
  Serious: Yes (Death, Other)
  Sender: FDA-Public Use
  Company Number: ADR-2014-01561

PATIENT
  Age: 55 Year
  Sex: Female

DRUGS (7)
  1. BACLOFEN. [Suspect]
     Active Substance: BACLOFEN
     Indication: CANCER PAIN
  2. CARBAMAZEPINE. [Suspect]
     Active Substance: CARBAMAZEPINE
     Indication: CANCER PAIN
  3. HYDROMORPHONE [Suspect]
     Active Substance: HYDROMORPHONE
  4. SUFENTANIL [Suspect]
     Active Substance: SUFENTANIL
  5. FENTANYL. [Suspect]
     Active Substance: FENTANYL
  6. METHADONE [Suspect]
     Active Substance: METHADONE HYDROCHLORIDE
  7. KETAMINE [Suspect]
     Active Substance: KETAMINE

REACTIONS (4)
  - Sedation [None]
  - Inadequate analgesia [None]
  - Depression [None]
  - Frustration [None]

NARRATIVE: CASE EVENT DATE: 20140213
